FAERS Safety Report 8016489-5 (Version None)
Quarter: 2011Q4

REPORT INFORMATION
  Report Type: 
  Country: None (occurrence: None)
  Receive Date: 20111230
  Receipt Date: 20111228
  Transmission Date: 20120403
  Serious: Yes (Death, Other)
  Sender: FDA-Public Use
  Company Number: US-ASTRAZENECA-2011SE78619

PATIENT
  Age: 14809 Day
  Sex: Male

DRUGS (11)
  1. ZOLOFT [Concomitant]
     Dates: start: 20061004
  2. SEROQUEL [Suspect]
     Route: 048
     Dates: start: 20070727
  3. PSEUDO-CHLORPHENIRAMINE [Concomitant]
     Dates: start: 20070705
  4. AMLODIPINE BESYLATE [Concomitant]
     Dates: start: 20070725
  5. SEROQUEL [Suspect]
     Route: 048
     Dates: start: 20060207
  6. CLONAZEPAM [Concomitant]
     Dates: start: 20070629
  7. CLONAZEPAM [Concomitant]
     Dates: start: 20070725
  8. FLUOXETINE [Concomitant]
     Dates: start: 20061004
  9. NITROGLYCERIN [Concomitant]
     Dates: start: 20070703
  10. DEPAKOTE ER [Concomitant]
     Dates: start: 20060207
  11. PROMETHAZINE [Concomitant]
     Dates: start: 20070810

REACTIONS (18)
  - CORONARY ARTERY DISEASE [None]
  - MAJOR DEPRESSION [None]
  - ANXIETY [None]
  - INSOMNIA [None]
  - UMBILICAL HERNIA [None]
  - MENTAL DISORDER [None]
  - HYPERTENSIVE HEART DISEASE [None]
  - ARTHRALGIA [None]
  - CARDIOMYOPATHY [None]
  - OBESITY [None]
  - TOBACCO ABUSE [None]
  - NARCISSISTIC PERSONALITY DISORDER [None]
  - OSTEOARTHRITIS [None]
  - HYPERLIPIDAEMIA [None]
  - HYPERTENSION [None]
  - CARDIAC FAILURE CONGESTIVE [None]
  - TYPE 2 DIABETES MELLITUS [None]
  - CHRONIC OBSTRUCTIVE PULMONARY DISEASE [None]
